FAERS Safety Report 5707812-2 (Version None)
Quarter: 2008Q2

REPORT INFORMATION
  Report Type: 
  Country: None (occurrence: None)
  Receive Date: 20080417
  Receipt Date: 20080408
  Transmission Date: 20081010
  Serious: Yes (Other)
  Sender: FDA-Public Use
  Company Number: CN-BAYER-200816425GPV

PATIENT

DRUGS (1)
  1. ULTRAVIST 370 [Suspect]
     Indication: ARTERIOGRAM CORONARY
     Route: 065
     Dates: start: 20050501, end: 20050501

REACTIONS (2)
  - ADVERSE DRUG REACTION [None]
  - RENAL FAILURE CHRONIC [None]
